FAERS Safety Report 16978739 (Version 1)
Quarter: 2019Q4

REPORT INFORMATION
  Report Type: Spontaneous
  Country: US (occurrence: US)
  Receive Date: 20191031
  Receipt Date: 20191031
  Transmission Date: 20200122
  Serious: Yes (Other)
  Sender: FDA-Public Use
  Company Number: US-SUNOVION-2019SUN004643

PATIENT
  Age: 29 Year
  Sex: Female
  Weight: 107.94 kg

DRUGS (2)
  1. APTIOM [Suspect]
     Active Substance: ESLICARBAZEPINE ACETATE
     Indication: SEIZURE
     Dosage: UNK, QD
     Route: 048
  2. APTIOM [Suspect]
     Active Substance: ESLICARBAZEPINE ACETATE
     Dosage: 600 MG, TID
     Route: 048

REACTIONS (5)
  - Drug ineffective [Unknown]
  - Overdose [Unknown]
  - Product use issue [Unknown]
  - Seizure [Unknown]
  - Therapeutic response shortened [Unknown]
